FAERS Safety Report 8486347 (Version 4)
Quarter: 2013Q2

REPORT INFORMATION
  Report Type: Spontaneous
  Country: US (occurrence: US)
  Receive Date: 20120402
  Receipt Date: 20130426
  Transmission Date: 20140414
  Serious: Yes (Other)
  Sender: FDA-Public Use
  Company Number: US-BAYER-2012-031132

PATIENT
  Age: 23 Year
  Sex: Female

DRUGS (1)
  1. MIRENA [Suspect]
     Indication: CONTRACEPTION
     Dosage: UNK
     Route: 015
     Dates: start: 20100412, end: 20110104

REACTIONS (5)
  - Pregnancy with contraceptive device [None]
  - Menstrual disorder [None]
  - Drug ineffective [None]
  - Cervical dysplasia [None]
  - Device dislocation [None]
